FAERS Safety Report 5330258-6 (Version None)
Quarter: 2007Q2

REPORT INFORMATION
  Report Type: 
  Country: None (occurrence: None)
  Receive Date: 20070515
  Receipt Date: 20070503
  Transmission Date: 20071010
  Serious: Yes (Hospitalization)
  Sender: FDA-Public Use
  Company Number: 16349

PATIENT
  Age: 52 Year
  Sex: Male

DRUGS (7)
  1. NIPENT [Suspect]
     Indication: NON-HODGKIN'S LYMPHOMA
     Dosage: 8.52 MG Q3W
     Dates: start: 20061017, end: 20070403
  2. CYTOXAN [Suspect]
     Indication: NON-HODGKIN'S LYMPHOMA
     Dosage: 1270 MG Q3W
     Dates: start: 20061017, end: 20070403
  3. RITUXAN [Suspect]
     Indication: NON-HODGKIN'S LYMPHOMA
     Dosage: 798 MG Q3W
     Dates: start: 20061024, end: 20070403
  4. NORVASC [Concomitant]
  5. DOXEPIN HCL [Concomitant]
  6. HYDROXYZINE HYDROCHLORIDE [Concomitant]
  7. IMMUNE GLOBULIN INTRAVENOUS (HUMAN) [Concomitant]

REACTIONS (9)
  - BACTERIAL INFECTION [None]
  - BLOOD IMMUNOGLOBULIN G DECREASED [None]
  - FURUNCLE [None]
  - LOBAR PNEUMONIA [None]
  - METABOLIC DISORDER [None]
  - NEUTROPENIC INFECTION [None]
  - RENAL FAILURE ACUTE [None]
  - SEPSIS [None]
  - URINARY TRACT INFECTION [None]
